FAERS Safety Report 24800563 (Version 2)
Quarter: 2025Q1

REPORT INFORMATION
  Report Type: Report from Study
  Country: CA (occurrence: CA)
  Receive Date: 20250102
  Receipt Date: 20250220
  Transmission Date: 20250409
  Serious: Yes (Death)
  Sender: ABBVIE
  Company Number: CA-ABBVIE-6068976

PATIENT
  Age: 65 Year
  Sex: Male

DRUGS (37)
  1. VENETOCLAX [Suspect]
     Active Substance: VENETOCLAX
     Indication: Acute myeloid leukaemia
     Dosage: DOSE INCREASE
     Route: 048
     Dates: start: 20241017, end: 20241017
  2. VENETOCLAX [Suspect]
     Active Substance: VENETOCLAX
     Indication: Acute myeloid leukaemia
     Dosage: DOSE INCREASE
     Route: 048
     Dates: start: 20241018, end: 20241018
  3. VENETOCLAX [Suspect]
     Active Substance: VENETOCLAX
     Indication: Acute myeloid leukaemia
     Route: 048
     Dates: start: 20241019, end: 20241023
  4. VENETOCLAX [Suspect]
     Active Substance: VENETOCLAX
     Indication: Acute myeloid leukaemia
     Route: 048
     Dates: start: 20241118, end: 20241201
  5. COVID-19 vaccine mRNA [Concomitant]
     Indication: COVID-19 immunisation
     Route: 030
  6. COVID-19 vaccine mRNA [Concomitant]
     Indication: COVID-19 immunisation
     Route: 030
  7. COVID-19 vaccine mRNA [Concomitant]
     Indication: COVID-19 immunisation
     Route: 030
  8. COVID-19 vaccine mRNA [Concomitant]
     Indication: COVID-19 immunisation
     Route: 030
  9. COVID-19 vaccine mRNA [Concomitant]
     Indication: COVID-19 immunisation
     Route: 030
  10. COVID-19 vaccine mRNA [Concomitant]
     Indication: COVID-19 immunisation
     Route: 030
  11. COVID-19 vaccine mRNA [Concomitant]
     Indication: COVID-19 immunisation
     Route: 030
  12. COVID-19 vaccine mRNA [Concomitant]
     Indication: COVID-19 immunisation
     Route: 030
  13. ASPIRIN [Concomitant]
     Active Substance: ASPIRIN
     Indication: Portal vein thrombosis
     Route: 048
     Dates: start: 2010, end: 20241218
  14. HYDROXYUREA [Concomitant]
     Active Substance: HYDROXYUREA
     Indication: Thrombosis prophylaxis
     Route: 048
     Dates: start: 20100311, end: 20241218
  15. ONDANSETRON [Concomitant]
     Active Substance: ONDANSETRON
     Indication: Nausea
     Route: 048
     Dates: start: 20241017, end: 20241023
  16. ALLOPURINOL [Concomitant]
     Active Substance: ALLOPURINOL
     Indication: Prophylaxis
     Route: 048
     Dates: start: 20241013, end: 20241026
  17. LEVOFLOXACIN [Concomitant]
     Active Substance: LEVOFLOXACIN
     Indication: Infection prophylaxis
     Route: 048
     Dates: start: 20241017, end: 20241218
  18. VALACYCLOVIR [Concomitant]
     Active Substance: VALACYCLOVIR HYDROCHLORIDE
     Indication: Infection prophylaxis
     Route: 048
     Dates: start: 20241013, end: 20241218
  19. CIPROFLOXACIN [Concomitant]
     Active Substance: CIPROFLOXACIN
     Indication: Infection prophylaxis
     Route: 048
     Dates: start: 20241013, end: 20241016
  20. FLUCONAZOLE [Concomitant]
     Active Substance: FLUCONAZOLE
     Indication: Infection prophylaxis
     Route: 048
     Dates: start: 20241013, end: 20241016
  21. RASBURICASE [Concomitant]
     Active Substance: RASBURICASE
     Indication: Prophylaxis
     Route: 042
     Dates: start: 20241016, end: 20241016
  22. PREDNISONE [Concomitant]
     Active Substance: PREDNISONE
     Indication: Muscular weakness
     Route: 048
     Dates: start: 20241017, end: 20241020
  23. PREDNISONE [Concomitant]
     Active Substance: PREDNISONE
     Indication: Muscular weakness
     Route: 048
     Dates: start: 20241021, end: 20241022
  24. PREDNISONE [Concomitant]
     Active Substance: PREDNISONE
     Indication: Muscular weakness
     Route: 048
     Dates: start: 20241023, end: 20241024
  25. PREDNISONE [Concomitant]
     Active Substance: PREDNISONE
     Indication: Muscular weakness
     Route: 048
     Dates: start: 20241115, end: 20241218
  26. PANTOPRAZOLE [Concomitant]
     Active Substance: PANTOPRAZOLE
     Indication: Gastrooesophageal reflux disease
     Dosage: DOSAGE: 40 UMOL/MG
     Route: 048
     Dates: start: 20241016, end: 20241024
  27. LEVOMEPROMAZINE [Concomitant]
     Active Substance: LEVOMEPROMAZINE
     Indication: Sleep disorder
     Route: 048
     Dates: start: 20241014, end: 20241023
  28. GRAVOL [Concomitant]
     Active Substance: DIMENHYDRINATE
     Indication: Nausea
     Route: 048
     Dates: start: 20241031, end: 20241218
  29. SEPTRA [Concomitant]
     Active Substance: SULFAMETHOXAZOLE\TRIMETHOPRIM
     Indication: Antifungal prophylaxis
     Route: 048
     Dates: start: 20241115, end: 20241218
  30. PREDNISONE [Concomitant]
     Active Substance: PREDNISONE
     Indication: Paraneoplastic syndrome
     Route: 048
     Dates: start: 20241121, end: 20241127
  31. PREDNISONE [Concomitant]
     Active Substance: PREDNISONE
     Indication: Paraneoplastic syndrome
     Route: 048
     Dates: start: 20241128, end: 20241204
  32. PREDNISONE [Concomitant]
     Active Substance: PREDNISONE
     Indication: Paraneoplastic syndrome
     Route: 048
     Dates: start: 20241205, end: 20241211
  33. PREDNISONE [Concomitant]
     Active Substance: PREDNISONE
     Indication: Paraneoplastic syndrome
     Route: 048
     Dates: start: 20241212, end: 20241218
  34. HYDROMORPHONE [Concomitant]
     Active Substance: HYDROMORPHONE
     Indication: Pain
     Route: 048
     Dates: start: 20241115, end: 20241218
  35. HYDROMORPHONE [Concomitant]
     Active Substance: HYDROMORPHONE
     Indication: Pain
     Route: 042
     Dates: start: 20241118, end: 20241118
  36. AZACITIDINE [Suspect]
     Active Substance: AZACITIDINE
     Indication: Acute myeloid leukaemia
     Route: 065
     Dates: start: 20241118, end: 20241124
  37. AZACITIDINE [Suspect]
     Active Substance: AZACITIDINE
     Indication: Acute myeloid leukaemia
     Route: 065
     Dates: start: 20241017, end: 20241023

REACTIONS (1)
  - Acute myeloid leukaemia [Fatal]

NARRATIVE: CASE EVENT DATE: 20241218
